FAERS Safety Report 8563095-X (Version None)
Quarter: 2012Q3

REPORT INFORMATION
  Report Type: 
  Country: None (occurrence: None)
  Receive Date: 20120802
  Receipt Date: 20120724
  Transmission Date: 20120928
  Serious: No
  Sender: FDA-Public Use
  Company Number: US-AMGEN-USASP2012046172

PATIENT
  Age: 29 Year
  Sex: Female

DRUGS (2)
  1. ENBREL [Suspect]
     Indication: PSORIATIC ARTHROPATHY
     Dosage: 50 MG, QWK
     Dates: start: 20100101, end: 20100101
  2. REMICADE [Concomitant]
     Dosage: UNK

REACTIONS (6)
  - THROAT TIGHTNESS [None]
  - ADVERSE DRUG REACTION [None]
  - INJECTION SITE PRURITUS [None]
  - INJECTION SITE SWELLING [None]
  - HYPERTENSION [None]
  - INJECTION SITE ERYTHEMA [None]
